FAERS Safety Report 4519112-7 (Version None)
Quarter: 2004Q4

REPORT INFORMATION
  Report Type: 
  Country: None (occurrence: None)
  Receive Date: 20041206
  Receipt Date: 20041012
  Transmission Date: 20050328
  Serious: Yes (Other)
  Sender: FDA-Public Use
  Company Number: 200420183GDDC

PATIENT
  Age: 76 Year
  Sex: Male

DRUGS (7)
  1. INDAPAMIDE [Suspect]
     Indication: HYPERTENSION
     Route: 048
     Dates: end: 20040910
  2. CLEMASTINE [Concomitant]
     Dosage: DOSE: UNK
  3. ASPIRIN [Concomitant]
     Dosage: DOSE: UNK
  4. ROFECOXIB [Concomitant]
     Dosage: DOSE: UNK
  5. ATENOLOL [Concomitant]
     Dosage: DOSE: UNK
  6. AMLODIPINE [Concomitant]
     Dosage: DOSE: UNK
  7. CO-CODAMOL [Concomitant]
     Dosage: DOSE: UNK

REACTIONS (5)
  - CONFUSIONAL STATE [None]
  - FALL [None]
  - HYPOKALAEMIA [None]
  - HYPONATRAEMIA [None]
  - MUSCULAR WEAKNESS [None]
